FAERS Safety Report 17183907 (Version 1)
Quarter: 2019Q4

REPORT INFORMATION
  Report Type: Report from Study
  Country: DE (occurrence: DE)
  Receive Date: 20191220
  Receipt Date: 20191220
  Transmission Date: 20200122
  Serious: Yes (Other)
  Sender: FDA-Public Use
  Company Number: DE-BAUSCH-BL-2019-065844

PATIENT
  Age: 31 Year
  Sex: Male
  Weight: 130 kg

DRUGS (1)
  1. KYNTHEUM [Suspect]
     Active Substance: BRODALUMAB
     Indication: PSORIASIS
     Route: 058
     Dates: start: 20180522

REACTIONS (2)
  - Muscle spasticity [Unknown]
  - Hypovitaminosis [Unknown]
